FAERS Safety Report 9579883 (Version 2)
Quarter: 2015Q1

REPORT INFORMATION
  Report Type: Spontaneous
  Country: US (occurrence: None)
  Receive Date: 20130916
  Receipt Date: 20150116
  Transmission Date: 20150721
  Serious: Yes (Other)
  Sender: FDA-Public Use
  Company Number: JPI-P-026370

PATIENT
  Age: 44 Year
  Sex: Male
  Weight: 70.5 kg

DRUGS (5)
  1. VALACYCLOVIR HYDROCHLORIDE. [Concomitant]
     Active Substance: VALACYCLOVIR HYDROCHLORIDE
  2. FEXOFENADINE [Concomitant]
     Active Substance: FEXOFENADINE\FEXOFENADINE HYDROCHLORIDE
  3. XYREM [Suspect]
     Active Substance: SODIUM OXYBATE
     Indication: CATAPLEXY
     Dosage: (4 GM FIRST DOSE/3 GM SECOND DOSE), ORAL
     Route: 048
     Dates: start: 200407, end: 2004
  4. XYREM [Suspect]
     Active Substance: SODIUM OXYBATE
     Indication: NARCOLEPSY
     Dosage: (4 GM FIRST DOSE/3 GM SECOND DOSE), ORAL
     Route: 048
     Dates: start: 200407, end: 2004
  5. DIPHENHYDRAMINE [Concomitant]
     Active Substance: DIPHENHYDRAMINE

REACTIONS (6)
  - Cough [None]
  - Bronchial hyperreactivity [None]
  - Exposure to toxic agent [None]
  - Blood pressure increased [None]
  - Respiratory disorder [None]
  - Hypertension [None]

NARRATIVE: CASE EVENT DATE: 20110811
